FAERS Safety Report 4416547-8 (Version None)
Quarter: 2004Q2

REPORT INFORMATION
  Report Type: 
  Country: None (occurrence: None)
  Receive Date: 20040630
  Receipt Date: 20040608
  Transmission Date: 20050107
  Serious: Yes (Other)
  Sender: FDA-Public Use
  Company Number: ENTC2004-0107

PATIENT
  Age: 89 Year
  Sex: Male

DRUGS (1)
  1. STALEVO 100 [Suspect]
     Indication: PARKINSON'S DISEASE
     Dosage: 150 MG / 37,5 MG/ 200 MG TWICE DAILY, ORAL
     Route: 048
     Dates: start: 20040301

REACTIONS (2)
  - BALANCE DISORDER [None]
  - MUSCULOSKELETAL STIFFNESS [None]
